FAERS Safety Report 9234887 (Version 2)
Quarter: 2013Q2

REPORT INFORMATION
  Report Type: Spontaneous
  Country: US (occurrence: US)
  Receive Date: 20130416
  Receipt Date: 20130416
  Transmission Date: 20140414
  Serious: No
  Sender: FDA-Public Use
  Company Number: US-BANPHARM-20120161

PATIENT
  Age: 86 Year
  Sex: Female
  Weight: 78 kg

DRUGS (3)
  1. ALEVE LIQUID GELS 220 MG [Suspect]
     Indication: ARTHRITIS
     Dosage: 2 DF, QD,
     Route: 048
     Dates: end: 201208
  2. ALEVE? CAPLETS - 50S [Suspect]
     Dosage: UNK, PRN
     Route: 048
     Dates: start: 201208, end: 20120827
  3. BAYER? 81MG ENTERIC ASPIRIN - 32S [Suspect]
     Dosage: 1 PRN
     Route: 048
     Dates: start: 20120910

REACTIONS (1)
  - Drug ineffective [Unknown]
